FAERS Safety Report 18599159 (Version 5)
Quarter: 2021Q1

REPORT INFORMATION
  Report Type: Report from Study
  Country: GH (occurrence: GH)
  Receive Date: 20201210
  Receipt Date: 20210311
  Transmission Date: 20210419
  Serious: Yes (Hospitalization, Other)
  Sender: FDA-Public Use
  Company Number: NVSC2020GH316144

PATIENT
  Age: 58 Year
  Sex: Male

DRUGS (1)
  1. UPERIO [Suspect]
     Active Substance: SACUBITRIL\VALSARTAN
     Indication: CONGESTIVE CARDIOMYOPATHY
     Dosage: 50 MG, QD
     Route: 048

REACTIONS (8)
  - Oedema peripheral [Not Recovered/Not Resolved]
  - Peripheral swelling [Unknown]
  - Prescribed underdose [Unknown]
  - Testicular oedema [Not Recovered/Not Resolved]
  - Product use in unapproved indication [Unknown]
  - Oedema [Not Recovered/Not Resolved]
  - Testicular swelling [Not Recovered/Not Resolved]
  - Abdominal distension [Unknown]
